FAERS Safety Report 14406944 (Version 1)
Quarter: 2018Q1

REPORT INFORMATION
  Report Type: Spontaneous
  Country: US (occurrence: US)
  Receive Date: 20180118
  Receipt Date: 20180118
  Transmission Date: 20180509
  Serious: Yes (Other)
  Sender: FDA-Public Use
  Company Number: US-PFIZER INC-2018020024

PATIENT
  Age: 59 Year
  Sex: Female
  Weight: 73 kg

DRUGS (2)
  1. ADVIL LIQUI-GELS [Suspect]
     Active Substance: IBUPROFEN
     Indication: PAIN
     Dosage: 400 MG, SINGLE
     Route: 048
     Dates: start: 20180111, end: 20180111
  2. ADVIL LIQUI-GELS [Suspect]
     Active Substance: IBUPROFEN
     Indication: MUSCULOSKELETAL STIFFNESS

REACTIONS (9)
  - Disorientation [Recovered/Resolved]
  - Nausea [Recovered/Resolved]
  - Dysstasia [Recovered/Resolved]
  - Dizziness [Unknown]
  - Wrong dose [Recovered/Resolved]
  - Headache [Not Recovered/Not Resolved]
  - Expired product administered [Recovered/Resolved]
  - Vomiting [Recovered/Resolved]
  - Retching [Recovered/Resolved]

NARRATIVE: CASE EVENT DATE: 20180111
